FAERS Safety Report 4399643-3 (Version None)
Quarter: 2004Q3

REPORT INFORMATION
  Report Type: 
  Country: None (occurrence: None)
  Receive Date: 20040713
  Receipt Date: 20040630
  Transmission Date: 20050211
  Serious: Yes (Death)
  Sender: FDA-Public Use
  Company Number: US-2004-028453

PATIENT
  Age: 65 Year
  Sex: Female

DRUGS (1)
  1. BETASERON [Suspect]
     Dates: start: 19950412

REACTIONS (1)
  - DEATH [None]
